FAERS Safety Report 16494843 (Version 9)
Quarter: 2020Q2

REPORT INFORMATION
  Report Type: Spontaneous
  Country: US (occurrence: US)
  Receive Date: 20190628
  Receipt Date: 20200424
  Transmission Date: 20200713
  Serious: Yes (Hospitalization, Other)
  Sender: FDA-Public Use
  Company Number: US-GILEAD-2019-0415427

PATIENT
  Age: 64 Year
  Sex: Male
  Weight: 81.25 kg

DRUGS (15)
  1. BIKTARVY [Suspect]
     Active Substance: BICTEGRAVIR SODIUM\EMTRICITABINE\TENOFOVIR ALAFENAMIDE FUMARATE
     Indication: HIV INFECTION
     Dosage: UNK
     Route: 065
     Dates: start: 201903
  2. TRUVADA [Suspect]
     Active Substance: EMTRICITABINE\TENOFOVIR DISOPROXIL FUMARATE
     Indication: HIV INFECTION
     Dosage: UNK
     Route: 065
     Dates: start: 2004
  3. OLMESARTAN [Concomitant]
     Active Substance: OLMESARTAN
  4. SUSTIVA [Suspect]
     Active Substance: EFAVIRENZ
     Indication: HIV INFECTION
     Route: 065
  5. CLONAZEPAM. [Concomitant]
     Active Substance: CLONAZEPAM
  6. VALACYCLOVIR HCL [Concomitant]
     Active Substance: VALACYCLOVIR HYDROCHLORIDE
  7. ATRIPLA [Suspect]
     Active Substance: EFAVIRENZ\EMTRICITABINE\TENOFOVIR DISOPROXIL FUMARATE
     Indication: HIV INFECTION
     Route: 065
  8. BACTRIM [Suspect]
     Active Substance: SULFAMETHOXAZOLE\TRIMETHOPRIM
     Indication: INFECTION PROPHYLAXIS
     Dosage: UNK
     Route: 065
  9. HEMP [Concomitant]
     Active Substance: HEMP
  10. LOMOTIL [LOPERAMIDE HYDROCHLORIDE] [Concomitant]
  11. CBD OIL [Concomitant]
     Active Substance: CANNABIDIOL\HERBALS
  12. ODEFSEY [Suspect]
     Active Substance: EMTRICITABINE\RILPIVIRINE HYDROCHLORIDE\TENOFOVIR ALAFENAMIDE FUMARATE
     Indication: HIV INFECTION
     Route: 065
  13. COMPLERA [Suspect]
     Active Substance: EMTRICITABINE\RILPIVIRINE HYDROCHLORIDE\TENOFOVIR DISOPROXIL FUMARATE
     Indication: HIV INFECTION
     Route: 065
  14. TENOFOVIR DISOPROXIL FUMARATE. [Suspect]
     Active Substance: TENOFOVIR DISOPROXIL FUMARATE
     Indication: HIV INFECTION
     Route: 065
  15. LOSARTAN. [Concomitant]
     Active Substance: LOSARTAN

REACTIONS (22)
  - Gait disturbance [Not Recovered/Not Resolved]
  - Stevens-Johnson syndrome [Recovered/Resolved]
  - Colorectal cancer [Unknown]
  - Disturbance in attention [Not Recovered/Not Resolved]
  - Nightmare [Unknown]
  - Neuropathy peripheral [Not Recovered/Not Resolved]
  - Diarrhoea [Not Recovered/Not Resolved]
  - Nausea [Unknown]
  - HIV-associated neurocognitive disorder [Unknown]
  - Gastrointestinal disorder [Unknown]
  - Lipids abnormal [Unknown]
  - Pain in extremity [Not Recovered/Not Resolved]
  - Laboratory test abnormal [Unknown]
  - Insomnia [Not Recovered/Not Resolved]
  - Anxiety [Not Recovered/Not Resolved]
  - Anal cancer [Unknown]
  - Cardiac failure [Unknown]
  - Amnesia [Not Recovered/Not Resolved]
  - Tinnitus [Not Recovered/Not Resolved]
  - Arthralgia [Not Recovered/Not Resolved]
  - Osteopenia [Not Recovered/Not Resolved]
  - T-lymphocyte count decreased [Unknown]

NARRATIVE: CASE EVENT DATE: 2014
